FAERS Safety Report 9223644 (Version 1)
Quarter: 2013Q2

REPORT INFORMATION
  Report Type: Spontaneous
  Country: US (occurrence: US)
  Receive Date: 20130410
  Receipt Date: 20130410
  Transmission Date: 20140414
  Serious: Yes (Death, Other)
  Sender: FDA-Public Use
  Company Number: US-OTSUKA-US-2013-10581

PATIENT
  Age: 61 Year
  Sex: 0

DRUGS (1)
  1. SAMSCA [Suspect]
     Dosage: UNK

REACTIONS (1)
  - Death [Fatal]
